FAERS Safety Report 6703050-5 (Version None)
Quarter: 2010Q2

REPORT INFORMATION
  Report Type: 
  Country: None (occurrence: None)
  Receive Date: 20100427
  Receipt Date: 20100414
  Transmission Date: 20101027
  Serious: Yes (Other)
  Sender: FDA-Public Use
  Company Number: 2010SP017836

PATIENT
  Age: 60 Year
  Sex: Female

DRUGS (10)
  1. SAPHRIS [Suspect]
     Indication: BIPOLAR DISORDER
     Dosage: 5 MG;HS;SL
     Dates: start: 20091110, end: 20100301
  2. DIAZEPAM [Concomitant]
  3. VISTARIL [Concomitant]
  4. INSULIN [Concomitant]
  5. METFORMIN HCL [Concomitant]
  6. GLYBURIDE [Concomitant]
  7. LOVASTATIN [Concomitant]
  8. PAROXETINE HCL [Concomitant]
  9. SIMVASTATIN [Concomitant]
  10. WELLBUTRIN SR [Concomitant]

REACTIONS (2)
  - DIZZINESS [None]
  - HYPERGLYCAEMIA [None]
